FAERS Safety Report 18569828 (Version 2)
Quarter: 2020Q4

REPORT INFORMATION
  Report Type: Other
  Country: CA (occurrence: CA)
  Receive Date: 20201202
  Receipt Date: 20201222
  Transmission Date: 20210114
  Serious: Yes (Hospitalization, Other)
  Sender: FDA-Public Use
  Company Number: CA-APOTEX-2020AP022742

PATIENT
  Sex: Female

DRUGS (15)
  1. FERROUS SULFATE. [Concomitant]
     Active Substance: FERROUS SULFATE
     Dosage: 1 DOSAGE FORM, Q.AM  (14 TABLETS FOR 7 DAYS)
     Route: 065
     Dates: start: 20201121
  2. LACTULOSE. [Concomitant]
     Active Substance: LACTULOSE
     Indication: PRODUCT USED FOR UNKNOWN INDICATION
     Dosage: 15 MILLILITER, Q.AM (105 ML FOR 7 DAYS)
     Route: 065
     Dates: start: 20200818
  3. ZOPICLONE [Concomitant]
     Active Substance: ZOPICLONE
     Indication: PRODUCT USED FOR UNKNOWN INDICATION
     Dosage: 1 DOSAGE FORM, Q.H.S. (7 TABLETS FOR 7 DAYS)
     Route: 065
     Dates: start: 20200818
  4. CLOZARIL [Concomitant]
     Active Substance: CLOZAPINE
     Indication: PRODUCT USED FOR UNKNOWN INDICATION
     Dosage: 25 MILLIGRAM, Q.H.S.
     Route: 065
     Dates: start: 20200818
  5. LACTULOSE. [Concomitant]
     Active Substance: LACTULOSE
     Dosage: 15 MILLILITER, Q.AM (105 ML FOR 7 DAYS)
     Route: 065
     Dates: start: 20201121
  6. AA-CLOZAPINE [Suspect]
     Active Substance: CLOZAPINE
     Indication: PRODUCT USED FOR UNKNOWN INDICATION
     Dosage: UNK
     Route: 065
  7. ABILIFY MAINTENA [Concomitant]
     Active Substance: ARIPIPRAZOLE
     Indication: PRODUCT USED FOR UNKNOWN INDICATION
     Dosage: UNK ONE EVERY 28 DAYS
     Route: 030
     Dates: start: 20201123
  8. RESTORALAX [Concomitant]
     Active Substance: POLYETHYLENE GLYCOL 3350
     Dosage: 17 GRAM, QD (DISSOLVE 17 GRAMS INTO GLASS OF WATER) (119 GRAM FOR 7 DAYS)
     Route: 065
     Dates: start: 20201117
  9. FERROUS SULFATE. [Concomitant]
     Active Substance: FERROUS SULFATE
     Indication: PRODUCT USED FOR UNKNOWN INDICATION
     Dosage: 1 DOSAGE FORM, BID  (14 TABLETS FOR 7 DAYS)
     Route: 065
     Dates: start: 20200818
  10. CLOZARIL [Concomitant]
     Active Substance: CLOZAPINE
     Dosage: 2 DOSAGE FORM, Q.H.S. (2 TABLETS OF 100 MG )
     Route: 065
     Dates: start: 20200818
  11. RISPERIDONE. [Suspect]
     Active Substance: RISPERIDONE
     Indication: PRODUCT USED FOR UNKNOWN INDICATION
     Dosage: UNK
     Route: 065
  12. PMS-VALPROIC ACID [Concomitant]
     Active Substance: VALPROIC ACID
     Indication: PRODUCT USED FOR UNKNOWN INDICATION
     Dosage: 3 DOSAGE FORM AT 13 (21 CAPSULE FOR 7 DAYS)
     Route: 065
     Dates: start: 20200818
  13. ZOPICLONE [Concomitant]
     Active Substance: ZOPICLONE
     Dosage: 1 DOSAGE FORM, Q.H.S. (7 TABLETS FOR 7 DAYS)
     Route: 048
     Dates: start: 20201121
  14. PMS-VALPROIC ACID [Concomitant]
     Active Substance: VALPROIC ACID
     Indication: PRODUCT USED FOR UNKNOWN INDICATION
     Dosage: 15 MILLILITER BY MOUTH AT 13 (WEEKLY DISPENSED) (105 ML FOR 7 ML)
     Route: 048
     Dates: start: 20201121
  15. RESTORALAX [Concomitant]
     Active Substance: POLYETHYLENE GLYCOL 3350
     Indication: PRODUCT USED FOR UNKNOWN INDICATION
     Dosage: 17 GRAM, QD (DISSOLVE 17 GRAMS INTO GLASS OF WATER) (119 GRAM FOR 7 DAYS)
     Route: 065
     Dates: start: 20200818

REACTIONS (3)
  - Neutropenia [Recovering/Resolving]
  - Blood prolactin increased [Unknown]
  - Treatment noncompliance [Unknown]
